FAERS Safety Report 6073319-9 (Version None)
Quarter: 2009Q1

REPORT INFORMATION
  Report Type: 
  Country: None (occurrence: None)
  Receive Date: 20090211
  Receipt Date: 20090130
  Transmission Date: 20090719
  Serious: Yes (Other)
  Sender: FDA-Public Use
  Company Number: CA-ROCHE-611764

PATIENT
  Age: 71 Year
  Sex: Female
  Weight: 90 kg

DRUGS (7)
  1. XELODA [Suspect]
     Indication: DRUG USE FOR UNKNOWN INDICATION
     Route: 048
  2. SYNTHROID [Suspect]
     Indication: DRUG USE FOR UNKNOWN INDICATION
     Route: 048
  3. ATENOLOL [Concomitant]
     Route: 048
  4. QUININE [Concomitant]
     Route: 048
  5. HYDROCHLOROTHIAZIDE [Concomitant]
     Route: 048
  6. RAMIPRIL [Concomitant]
     Route: 048
  7. RABEPRAZOLE SODIUM [Concomitant]
     Route: 048

REACTIONS (2)
  - DRUG LEVEL DECREASED [None]
  - HYPOTHYROIDISM [None]
